FAERS Safety Report 19910912 (Version 1)
Quarter: 2021Q4

REPORT INFORMATION
  Report Type: Spontaneous
  Country: CA (occurrence: CA)
  Receive Date: 20211004
  Receipt Date: 20211004
  Transmission Date: 20220304
  Serious: Yes (Other)
  Sender: FDA-Public Use
  Company Number: CA-ROCHE-2923705

PATIENT
  Sex: Male

DRUGS (2)
  1. RITUXIMAB [Suspect]
     Active Substance: RITUXIMAB
     Indication: Rosai-Dorfman syndrome
     Dosage: THERAPY DURATION: 11.0 DAYS
     Route: 042
  2. RITUXIMAB [Suspect]
     Active Substance: RITUXIMAB
     Route: 042

REACTIONS (7)
  - Bone formation increased [Unknown]
  - Bone lesion [Unknown]
  - Nasal disorder [Unknown]
  - Oral disorder [Unknown]
  - Palatal disorder [Unknown]
  - Off label use [Unknown]
  - Intentional product use issue [Unknown]
